FAERS Safety Report 16950974 (Version 1)
Quarter: 2019Q4

REPORT INFORMATION
  Report Type: Spontaneous
  Country: US (occurrence: US)
  Receive Date: 20191022
  Receipt Date: 20191022
  Transmission Date: 20200122
  Serious: Yes (Hospitalization)
  Sender: FDA-Public Use
  Company Number: None

PATIENT
  Age: 86 Year
  Sex: Female
  Weight: 77.6 kg

DRUGS (1)
  1. WARFARIN [Suspect]
     Active Substance: WARFARIN
     Indication: ATRIAL FIBRILLATION
     Dosage: ?          OTHER FREQUENCY:3/WK, 2.5 4/WK;?
     Route: 048
     Dates: start: 20091021, end: 20191021

REACTIONS (3)
  - Extradural haematoma [None]
  - Anticoagulation drug level above therapeutic [None]
  - Fall [None]

NARRATIVE: CASE EVENT DATE: 20191021
